FAERS Safety Report 9872566 (Version 3)
Quarter: 2016Q1

REPORT INFORMATION
  Report Type: Other
  Country: US (occurrence: US)
  Receive Date: 20140206
  Receipt Date: 20160217
  Transmission Date: 20160526
  Serious: No
  Sender: FDA-Public Use
  Company Number: US-ACORDA-ACO_100719_2013

PATIENT
  Sex: Female

DRUGS (1)
  1. AMPYRA [Suspect]
     Active Substance: DALFAMPRIDINE
     Indication: PRODUCT USED FOR UNKNOWN INDICATION
     Dosage: 10 MG, UNK
     Route: 065
     Dates: start: 20130517

REACTIONS (7)
  - Pain [Unknown]
  - Drug dose omission [Unknown]
  - Malaise [Unknown]
  - Drug dose omission [Unknown]
  - Urinary tract infection [Unknown]
  - Drug ineffective [Unknown]
  - Muscular weakness [Unknown]

NARRATIVE: CASE EVENT DATE: 2013
